FAERS Safety Report 21885725 (Version 1)
Quarter: 2023Q1

REPORT INFORMATION
  Report Type: Spontaneous
  Country: US (occurrence: US)
  Receive Date: 20230119
  Receipt Date: 20230119
  Transmission Date: 20230417
  Serious: Yes (Other)
  Sender: FDA-Public Use
  Company Number: US-FreseniusKabi-FK202300537

PATIENT
  Sex: Male

DRUGS (3)
  1. FENTANYL [Suspect]
     Active Substance: FENTANYL
     Indication: Spinal pain
     Route: 065
  2. PRIALT [Suspect]
     Active Substance: ZICONOTIDE ACETATE
     Indication: Spinal pain
     Route: 065
  3. OXYCODONE [Suspect]
     Active Substance: OXYCODONE
     Indication: Spinal pain
     Route: 065

REACTIONS (7)
  - Hallucination, auditory [Unknown]
  - Panic attack [Unknown]
  - Mental status changes [Unknown]
  - Disorientation [Unknown]
  - Confusional state [Unknown]
  - Amnesia [Unknown]
  - Tremor [Unknown]
